FAERS Safety Report 7668540-X (Version None)
Quarter: 2011Q3

REPORT INFORMATION
  Report Type: 
  Country: None (occurrence: None)
  Receive Date: 20110808
  Receipt Date: 20110803
  Transmission Date: 20111222
  Serious: Yes (Hospitalization)
  Sender: FDA-Public Use
  Company Number: US-SANOFI-AVENTIS-2011SA049810

PATIENT
  Age: 79 Year
  Sex: Female

DRUGS (1)
  1. AMBIEN [Suspect]
     Route: 048
     Dates: start: 20101201

REACTIONS (3)
  - FALL [None]
  - VISION BLURRED [None]
  - UPPER LIMB FRACTURE [None]
